FAERS Safety Report 7954159-X (Version None)
Quarter: 2011Q4

REPORT INFORMATION
  Report Type: 
  Country: None (occurrence: None)
  Receive Date: 20111129
  Receipt Date: 20101222
  Transmission Date: 20120403
  Serious: No
  Sender: FDA-Public Use
  Company Number: USA/USA/10/0016975

PATIENT
  Sex: Female

DRUGS (1)
  1. GLIMEPIRIDE [Suspect]
     Indication: PRODUCT USED FOR UNKNOWN INDICATION
     Dosage: 4 MG, ORAL
     Route: 048

REACTIONS (2)
  - BLOOD GLUCOSE INCREASED [None]
  - PRODUCT SUBSTITUTION ISSUE [None]
